FAERS Safety Report 15262122 (Version 1)
Quarter: 2018Q3

REPORT INFORMATION
  Report Type: Spontaneous
  Country: IT (occurrence: IT)
  Receive Date: 20180809
  Receipt Date: 20180809
  Transmission Date: 20181010
  Serious: Yes (Hospitalization)
  Sender: FDA-Public Use
  Company Number: PHHY2018IT069246

PATIENT
  Age: 63 Year
  Sex: Male

DRUGS (1)
  1. SECUKINUMAB. [Suspect]
     Active Substance: SECUKINUMAB
     Indication: PSORIATIC ARTHROPATHY
     Dosage: 2 DF, CYCLIC
     Route: 058
     Dates: start: 20180418, end: 20180513

REACTIONS (1)
  - Guillain-Barre syndrome [Recovered/Resolved with Sequelae]

NARRATIVE: CASE EVENT DATE: 20180513
